FAERS Safety Report 18457743 (Version 2)
Quarter: 2020Q4

REPORT INFORMATION
  Report Type: Spontaneous
  Country: IT (occurrence: IT)
  Receive Date: 20201103
  Receipt Date: 20201105
  Transmission Date: 20210114
  Serious: Yes (Hospitalization)
  Sender: FDA-Public Use
  Company Number: IT-TEVA-2020-IT-1843455

PATIENT
  Age: 87 Year
  Sex: Male

DRUGS (2)
  1. SIMVASTATIN. [Suspect]
     Active Substance: SIMVASTATIN
     Dosage: 1DOSAGEFORM
     Route: 048
  2. COUMADIN [Interacting]
     Active Substance: WARFARIN SODIUM
     Dosage: 2.5MILLIGRAM
     Route: 048
     Dates: start: 20201007, end: 20201013

REACTIONS (2)
  - International normalised ratio increased [Recovering/Resolving]
  - Drug interaction [Recovering/Resolving]

NARRATIVE: CASE EVENT DATE: 20201013
